FAERS Safety Report 4948796-4 (Version None)
Quarter: 2006Q1

REPORT INFORMATION
  Report Type: 
  Country: None (occurrence: None)
  Receive Date: 20060315
  Receipt Date: 20060308
  Transmission Date: 20060701
  Serious: Yes (Other)
  Sender: FDA-Public Use
  Company Number: HQWYE278510FEB03

PATIENT
  Age: 64 Year
  Sex: Male
  Weight: 66 kg

DRUGS (10)
  1. MYLOTARG [Suspect]
     Indication: ACUTE MYELOID LEUKAEMIA
     Dosage: 11 MG 1X PER 1 DAY, INTRAVENOUS
     Route: 042
     Dates: start: 20021206, end: 20021206
  2. CYTARABINE [Concomitant]
  3. ZOFRAN [Concomitant]
  4. PROPRANOLOL [Concomitant]
  5. ENALAPRIL MALEATE [Concomitant]
  6. ACYCLOVIR [Concomitant]
  7. PREVACID [Concomitant]
  8. PHOSLO [Concomitant]
  9. ITRACONAZONE (ITRACONAZONE) [Concomitant]
  10. ACETAMINOPHEN [Concomitant]

REACTIONS (6)
  - CHEST DISCOMFORT [None]
  - DYSPNOEA [None]
  - HYPERHIDROSIS [None]
  - HYPOTENSION [None]
  - HYPOXIA [None]
  - INFUSION RELATED REACTION [None]
